FAERS Safety Report 7176443-2 (Version None)
Quarter: 2010Q4

REPORT INFORMATION
  Report Type: 
  Country: None (occurrence: None)
  Receive Date: 20101220
  Receipt Date: 20101209
  Transmission Date: 20110411
  Serious: Yes (Hospitalization)
  Sender: FDA-Public Use
  Company Number: ES-JNJFOC-20101204712

PATIENT
  Sex: Female

DRUGS (3)
  1. REMICADE [Suspect]
     Indication: CROHN'S DISEASE
     Route: 042
  2. REMICADE [Suspect]
     Route: 042
  3. ADALIMUMAB [Concomitant]
     Indication: CROHN'S DISEASE

REACTIONS (2)
  - CYSTITIS KLEBSIELLA [None]
  - DRUG EXPOSURE BEFORE PREGNANCY [None]
